FAERS Safety Report 6630198-6 (Version None)
Quarter: 2010Q1

REPORT INFORMATION
  Report Type: 
  Country: None (occurrence: None)
  Receive Date: 20100311
  Receipt Date: 20100301
  Transmission Date: 20100710
  Serious: Yes (Death)
  Sender: FDA-Public Use
  Company Number: A0782586A

PATIENT
  Age: 12 Year
  Sex: Female

DRUGS (8)
  1. ADVAIR DISKUS 100/50 [Suspect]
     Indication: ASTHMA
     Dosage: 1PUFF TWICE PER DAY
     Route: 055
  2. SEREVENT [Suspect]
     Indication: DRUG USE FOR UNKNOWN INDICATION
     Route: 055
  3. ALBUTEROL [Concomitant]
     Route: 065
  4. ZYRTEC [Concomitant]
  5. FLUTICASONE PROPIONATE [Concomitant]
  6. SINGULAIR [Concomitant]
  7. VENTOLIN [Concomitant]
  8. ALLERGY INJECTIONS [Concomitant]
     Dates: start: 20030901

REACTIONS (3)
  - ASTHMA [None]
  - BRONCHIOLITIS [None]
  - PNEUMONIA [None]
